FAERS Safety Report 9735911 (Version 2)
Quarter: 2014Q2

REPORT INFORMATION
  Report Type: Spontaneous
  Country: US (occurrence: US)
  Receive Date: 20131206
  Receipt Date: 20140424
  Transmission Date: 20141212
  Serious: Yes (Other)
  Sender: FDA-Public Use
  Company Number: US-PFIZER INC-2013347508

PATIENT
  Age: 64 Year
  Sex: Female
  Weight: 66.2 kg

DRUGS (1)
  1. AROMASIN [Suspect]
     Indication: BREAST CANCER
     Dosage: 25 MG, 1X/DAY
     Route: 048
     Dates: start: 201303, end: 201305

REACTIONS (2)
  - Renal impairment [Unknown]
  - Blood creatinine increased [Unknown]
